FAERS Safety Report 15849850 (Version 1)
Quarter: 2019Q1

REPORT INFORMATION
  Report Type: Report from Study
  Country: None (occurrence: US)
  Receive Date: 20190121
  Receipt Date: 20190121
  Transmission Date: 20190417
  Serious: Yes (Other)
  Sender: FDA-Public Use
  Company Number: US-ABBVIE-19K-163-2622553-00

PATIENT
  Age: 35 Year
  Sex: Female

DRUGS (1)
  1. HUMIRA [Suspect]
     Active Substance: ADALIMUMAB
     Indication: HIDRADENITIS
     Route: 058
     Dates: start: 201812

REACTIONS (8)
  - Injection site mass [Not Recovered/Not Resolved]
  - Benign ovarian tumour [Recovering/Resolving]
  - Abdominal neoplasm [Recovering/Resolving]
  - Abdominal pain [Unknown]
  - Product administered at inappropriate site [Not Recovered/Not Resolved]
  - Benign fallopian tube neoplasm [Recovering/Resolving]
  - Neoplasm of appendix [Recovering/Resolving]
  - Abdominal distension [Unknown]

NARRATIVE: CASE EVENT DATE: 201901
